FAERS Safety Report 4876496-8 (Version None)
Quarter: 2005Q4

REPORT INFORMATION
  Report Type: 
  Country: None (occurrence: None)
  Receive Date: 20051206
  Receipt Date: 20050823
  Transmission Date: 20060501
  Serious: No
  Sender: FDA-Public Use
  Company Number: USA0507102201

PATIENT
  Age: 71 Year
  Sex: Female

DRUGS (3)
  1. CYMBALTA [Suspect]
     Indication: NEURALGIA
     Dosage: 30 MG
     Dates: start: 20041201
  2. STATIN [Concomitant]
  3. NEURONTIN [Concomitant]

REACTIONS (3)
  - APHASIA [None]
  - EXTRAPYRAMIDAL DISORDER [None]
  - PARKINSONISM [None]
